FAERS Safety Report 8105591-5 (Version None)
Quarter: 2012Q1

REPORT INFORMATION
  Report Type: 
  Country: None (occurrence: None)
  Receive Date: 20120201
  Receipt Date: 20120131
  Transmission Date: 20120608
  Serious: Yes (Hospitalization)
  Sender: FDA-Public Use
  Company Number: US-PFIZER INC-2012026631

PATIENT
  Sex: Female
  Weight: 71.202 kg

DRUGS (4)
  1. GABAPENTIN [Concomitant]
     Indication: BACK PAIN
     Dosage: UNK
  2. CHANTIX [Suspect]
     Indication: SMOKING CESSATION THERAPY
     Dosage: 0.5 MG, 1X/DAY
     Route: 048
     Dates: start: 20111201
  3. CHANTIX [Suspect]
     Dosage: UNK
     Route: 048
     Dates: end: 20120123
  4. MOBIC [Concomitant]
     Indication: BACK PAIN
     Dosage: UNK

REACTIONS (1)
  - SUICIDE ATTEMPT [None]
